FAERS Safety Report 8854944 (Version 1)
Quarter: 2012Q4

REPORT INFORMATION
  Report Type: 
  Country: GB (occurrence: GB)
  Receive Date: 20121023
  Receipt Date: 20121023
  Transmission Date: 20130627
  Serious: Yes (Other)
  Sender: FDA-Public Use
  Company Number: GB-009507513-1210GBR008202

PATIENT
  Age: 29 Year
  Sex: Male
  Weight: 91 kg

DRUGS (8)
  1. VICTRELIS [Suspect]
     Indication: HEPATITIS C
     Dosage: 800 mg, qid
     Route: 048
     Dates: start: 20120808, end: 20120830
  2. RIBAVIRIN [Concomitant]
     Indication: HEPATITIS C
     Dosage: 600 mg, bid
     Route: 048
     Dates: start: 20120704
  3. PEGINTERFERON ALFA-2A [Suspect]
     Indication: HEPATITIS C
     Dosage: 1 DF, qw
     Route: 058
     Dates: start: 20120704
  4. METHADONE HYDROCHLORIDE [Concomitant]
     Dosage: 60 mg, UNK
     Route: 048
  5. OMEPRAZOLE [Concomitant]
     Indication: GASTROOESOPHAGEAL REFLUX DISEASE
     Dosage: 20 mg, qd
  6. TRAMADOL HYDROCHLORIDE [Concomitant]
     Indication: ANALGESIC THERAPY
     Dosage: 150 mg, bid
  7. TRAMADOL HYDROCHLORIDE [Concomitant]
     Indication: OSTEOCHONDROSIS
  8. ZOPICLONE [Concomitant]
     Indication: INSOMNIA
     Dosage: 7.5 mg, qd

REACTIONS (2)
  - Palpitations [Recovered/Resolved]
  - Tachycardia [Recovered/Resolved]
